FAERS Safety Report 25715100 (Version 2)
Quarter: 2025Q3

REPORT INFORMATION
  Report Type: Report from Study
  Country: US (occurrence: US)
  Receive Date: 20250822
  Receipt Date: 20250829
  Transmission Date: 20251020
  Serious: Yes (Other)
  Sender: SPRINGWORKS THERAPEUTIC
  Company Number: US-SPRINGWORKS THERAPEUTICS-SW-002313

PATIENT
  Sex: Male

DRUGS (3)
  1. NIROGACESTAT [Suspect]
     Active Substance: NIROGACESTAT
     Indication: Desmoid tumour
     Dosage: 150 MILLIGRAM, BID
     Route: 048
     Dates: start: 20250106, end: 20250814
  2. NIROGACESTAT [Suspect]
     Active Substance: NIROGACESTAT
     Dosage: 150 MILLIGRAM, BID
     Route: 048
     Dates: start: 20250122, end: 20250814
  3. EZETIMIBE [Concomitant]
     Active Substance: EZETIMIBE
     Indication: Blood cholesterol
     Dosage: 10 MILLIGRAM, QD

REACTIONS (19)
  - Drug ineffective [Unknown]
  - Illness [Unknown]
  - Surgery [Unknown]
  - Hypoaesthesia [Unknown]
  - Movement disorder [Unknown]
  - Pain [Unknown]
  - Gout [Unknown]
  - Tumour pain [Unknown]
  - Neoplasm progression [Unknown]
  - Discomfort [Unknown]
  - Pruritus [Unknown]
  - Diarrhoea [Unknown]
  - Fatigue [Unknown]
  - Therapy interrupted [Unknown]
  - Product prescribing issue [Unknown]
  - Intentional dose omission [Unknown]
  - Product administration error [Unknown]
  - Product dose omission issue [Unknown]
  - Therapy cessation [Unknown]
